FAERS Safety Report 6931628-2 (Version None)
Quarter: 2010Q3

REPORT INFORMATION
  Report Type: 
  Country: None (occurrence: None)
  Receive Date: 20100819
  Receipt Date: 20100713
  Transmission Date: 20110219
  Serious: Yes (Congenital Anomaly)
  Sender: FDA-Public Use
  Company Number: FR-SANOFI-AVENTIS-200910163FR

PATIENT
  Age: 0 Day

DRUGS (3)
  1. RIFAMATE [Suspect]
     Route: 064
     Dates: start: 20070501, end: 20080416
  2. ORAL CONTRACEPTIVE NOS [Suspect]
     Indication: CONTRACEPTION
     Route: 064
  3. ANTI-TUMOR NECROSIS FACTOR MONOCLON. ANTIBODY [Concomitant]
     Indication: ANKYLOSING SPONDYLITIS

REACTIONS (4)
  - DRUG EXPOSURE DURING PREGNANCY [None]
  - DRUG INTERACTION [None]
  - PREGNANCY ON ORAL CONTRACEPTIVE [None]
  - SKULL MALFORMATION [None]
